FAERS Safety Report 18944367 (Version 3)
Quarter: 2021Q1

REPORT INFORMATION
  Report Type: Spontaneous
  Country: FR (occurrence: FR)
  Receive Date: 20210226
  Receipt Date: 20210331
  Transmission Date: 20210420
  Serious: Yes (Other)
  Sender: FDA-Public Use
  Company Number: FR-SA-2021SA064823

PATIENT
  Age: 26 Year
  Sex: Male

DRUGS (24)
  1. AZYTER [Concomitant]
     Active Substance: AZITHROMYCIN ANHYDROUS
     Indication: MEIBOMIANITIS
  2. NAABAK 4.9% [Concomitant]
     Active Substance: ISOSPAGLUMIC ACID
     Indication: CONJUNCTIVITIS
  3. NAABAK 4.9% [Concomitant]
     Active Substance: ISOSPAGLUMIC ACID
     Indication: MEIBOMIANITIS
  4. VISMED MULTI [Concomitant]
     Indication: BLEPHARITIS
     Dosage: UNK
  5. VISMED MULTI [Concomitant]
     Indication: MEIBOMIANITIS
  6. BLEPHACLEAN [Concomitant]
     Indication: CONJUNCTIVITIS
  7. FOLIC ACID. [Concomitant]
     Active Substance: FOLIC ACID
     Indication: PANCREATIC FAILURE
     Dosage: UNK
  8. BLEPHACLEAN [Concomitant]
     Indication: MEIBOMIANITIS
  9. THEALOSE [Concomitant]
     Active Substance: HYALURONATE SODIUM\TREHALOSE
     Indication: MEIBOMIANITIS
  10. VISMED MULTI [Concomitant]
     Indication: CONJUNCTIVITIS
  11. CALCIUM [Concomitant]
     Active Substance: CALCIUM
     Indication: PANCREATIC FAILURE
     Dosage: UNK
  12. VITAMIN B CO [Concomitant]
     Dosage: UNK
  13. NAABAK 4.9% [Concomitant]
     Active Substance: ISOSPAGLUMIC ACID
     Indication: BLEPHARITIS
     Dosage: UNK
  14. VITAMIN B12 [VITAMIN B12 NOS] [Concomitant]
     Active Substance: CYANOCOBALAMIN
     Indication: PANCREATIC FAILURE
     Dosage: UNK
  15. THEALOSE [Concomitant]
     Active Substance: HYALURONATE SODIUM\TREHALOSE
     Indication: BLEPHARITIS
     Dosage: UNK
  16. AZYTER [Concomitant]
     Active Substance: AZITHROMYCIN ANHYDROUS
     Indication: BLEPHARITIS
     Dosage: UNK
  17. BLEPHACLEAN [Concomitant]
     Indication: BLEPHARITIS
     Dosage: UNK
  18. TARDYFERON [Concomitant]
     Active Substance: FERROUS SULFATE
     Indication: PANCREATIC FAILURE
     Dosage: UNK
  19. DUPIXENT [Suspect]
     Active Substance: DUPILUMAB
     Indication: DERMATITIS ATOPIC
     Dosage: 300 MG, QOW
     Dates: start: 201912, end: 20210120
  20. AZYTER [Concomitant]
     Active Substance: AZITHROMYCIN ANHYDROUS
     Indication: CONJUNCTIVITIS
  21. THEALOSE [Concomitant]
     Active Substance: HYALURONATE SODIUM\TREHALOSE
     Indication: CONJUNCTIVITIS
  22. TOCO [Concomitant]
     Active Substance: .ALPHA.-TOCOPHEROL ACETATE, D-
     Indication: PANCREATIC FAILURE
     Dosage: UNK
  23. CALCIFEROL [ERGOCALCIFEROL] [Concomitant]
     Active Substance: ERGOCALCIFEROL
     Indication: PANCREATIC FAILURE
     Dosage: UNK
  24. VITAMIN YEAST [Concomitant]
     Dosage: UNK

REACTIONS (4)
  - Meibomianitis [Not Recovered/Not Resolved]
  - Conjunctivitis [Not Recovered/Not Resolved]
  - Punctate keratitis [Not Recovered/Not Resolved]
  - Skin plaque [Unknown]

NARRATIVE: CASE EVENT DATE: 2020
